FAERS Safety Report 10702608 (Version 1)
Quarter: 2015Q1

REPORT INFORMATION
  Report Type: Spontaneous
  Country: US (occurrence: US)
  Receive Date: 20150109
  Receipt Date: 20150109
  Transmission Date: 20150721
  Serious: Yes (Congenital Anomaly, Other)
  Sender: FDA-Public Use
  Company Number: US-ABBVIE-15P-163-1331092-00

PATIENT

DRUGS (1)
  1. DEPAKOTE [Suspect]
     Active Substance: DIVALPROEX SODIUM
     Indication: MATERNAL EXPOSURE TIMING UNSPECIFIED
     Route: 064

REACTIONS (23)
  - Injury [Unknown]
  - Pain [Unknown]
  - Anhedonia [Unknown]
  - Economic problem [Unknown]
  - Nervous system disorder [Unknown]
  - Social problem [Unknown]
  - Emotional distress [Unknown]
  - Developmental delay [Unknown]
  - Mental impairment [Unknown]
  - Multiple congenital abnormalities [Unknown]
  - Congenital nose malformation [Unknown]
  - Amblyopia [Unknown]
  - Trichotillomania [Unknown]
  - Abnormal behaviour [Unknown]
  - Ventricular septal defect [Unknown]
  - Cognitive disorder [Unknown]
  - Motor developmental delay [Unknown]
  - Foetal exposure during pregnancy [Unknown]
  - Attention deficit/hyperactivity disorder [Unknown]
  - Pica [Unknown]
  - Macrocephaly [Unknown]
  - Dysmorphism [Unknown]
  - Congenital eye disorder [Unknown]
